FAERS Safety Report 4421503-X (Version None)
Quarter: 2004Q3

REPORT INFORMATION
  Report Type: 
  Country: None (occurrence: None)
  Receive Date: 20040709
  Receipt Date: 20031208
  Transmission Date: 20050211
  Serious: Yes (Other)
  Sender: FDA-Public Use
  Company Number: US-SHR-03-018410

PATIENT
  Age: 81 Year
  Sex: Female
  Weight: 46.3 kg

DRUGS (1)
  1. ULTRAVIST 300 [Suspect]
     Indication: COMPUTERISED TOMOGRAM
     Dosage: 145 ML, 1 DOSE, INTRAVENOUS
     Route: 042
     Dates: start: 20030924, end: 20030924

REACTIONS (5)
  - CHEST DISCOMFORT [None]
  - DYSPNOEA [None]
  - ERYTHEMA [None]
  - FAECAL INCONTINENCE [None]
  - PRURITUS [None]
